FAERS Safety Report 23272070 (Version 1)
Quarter: 2023Q4

REPORT INFORMATION
  Report Type: Spontaneous
  Country: AT (occurrence: AT)
  Receive Date: 20231207
  Receipt Date: 20231207
  Transmission Date: 20240109
  Serious: Yes (Death, Other)
  Sender: FDA-Public Use
  Company Number: AT-IMMUNOCORE, LTD.-2023-IMC-001930

PATIENT

DRUGS (1)
  1. KIMMTRAK [Suspect]
     Active Substance: TEBENTAFUSP-TEBN
     Indication: Uveal melanoma
     Dosage: 20 MICROGRAM
     Dates: start: 20231013

REACTIONS (7)
  - Cytokine release syndrome [Fatal]
  - Pyrexia [Unknown]
  - Tachypnoea [Unknown]
  - Tachycardia [Unknown]
  - Hypotension [Unknown]
  - Hypoxia [Unknown]
  - Hypertension [Unknown]
